FAERS Safety Report 4821882-5 (Version None)
Quarter: 2005Q4

REPORT INFORMATION
  Report Type: 
  Country: None (occurrence: None)
  Receive Date: 20051107
  Receipt Date: 20051027
  Transmission Date: 20060501
  Serious: Yes (Hospitalization)
  Sender: FDA-Public Use
  Company Number: PHHO2005DE17041

PATIENT
  Age: 57 Year
  Sex: Female
  Weight: 82 kg

DRUGS (2)
  1. IRBESARTAN [Suspect]
     Indication: ESSENTIAL HYPERTENSION
     Dosage: NO TREATMENT
  2. ESIDRIX [Suspect]
     Indication: ESSENTIAL HYPERTENSION
     Dosage: 25 MG/DAY
     Route: 048
     Dates: start: 20051004, end: 20051027

REACTIONS (4)
  - ANGINA PECTORIS [None]
  - CHEST DISCOMFORT [None]
  - DRUG INEFFECTIVE [None]
  - HYPERTENSIVE CRISIS [None]
